FAERS Safety Report 25283157 (Version 2)
Quarter: 2025Q2

REPORT INFORMATION
  Report Type: Spontaneous
  Country: RO (occurrence: RO)
  Receive Date: 20250508
  Receipt Date: 20250609
  Transmission Date: 20250717
  Serious: Yes (Other)
  Sender: UCB
  Company Number: RO-UCBSA-2025025715

PATIENT
  Sex: Female

DRUGS (8)
  1. KEPPRA [Suspect]
     Active Substance: LEVETIRACETAM
     Indication: Product used for unknown indication
     Dates: end: 2019
  2. KEPPRA [Suspect]
     Active Substance: LEVETIRACETAM
     Dosage: UNK UNK, 2X/DAY (BID)
     Dates: start: 2014
  3. KEPPRA [Suspect]
     Active Substance: LEVETIRACETAM
  4. KEPPRA [Suspect]
     Active Substance: LEVETIRACETAM
     Indication: Product used for unknown indication
     Dates: end: 2021
  5. VALPROIC ACID [Suspect]
     Active Substance: VALPROIC ACID
     Indication: Epileptic encephalopathy
  6. CARBAMAZEPINE [Suspect]
     Active Substance: CARBAMAZEPINE
     Indication: Product used for unknown indication
  7. SULTHIAME [Suspect]
     Active Substance: SULTHIAME
     Indication: Product used for unknown indication
  8. OXCARBAZEPINE [Suspect]
     Active Substance: OXCARBAZEPINE
     Indication: Product used for unknown indication

REACTIONS (4)
  - Brain neoplasm [Unknown]
  - Ventriculo-peritoneal shunt [Unknown]
  - Multiple-drug resistance [Unknown]
  - Wrong technique in product usage process [Unknown]

NARRATIVE: CASE EVENT DATE: 20150101
